FAERS Safety Report 4715690-3 (Version None)
Quarter: 2005Q3

REPORT INFORMATION
  Report Type: 
  Country: None (occurrence: None)
  Receive Date: 20050713
  Receipt Date: 20050704
  Transmission Date: 20060218
  Serious: Yes (Death, Life-Threatening, Hospitalization)
  Sender: FDA-Public Use
  Company Number: WAES 0407USA00513

PATIENT
  Age: 80 Year
  Sex: Male

DRUGS (5)
  1. COZAAR [Suspect]
     Indication: HYPERTENSION
     Dosage: SEE IMAGE
     Route: 048
     Dates: start: 20000906, end: 20010213
  2. COZAAR [Suspect]
     Indication: HYPERTENSION
     Dosage: SEE IMAGE
     Route: 048
     Dates: start: 20010214, end: 20040413
  3. COZAAR [Suspect]
     Indication: HYPERTENSION
     Dosage: SEE IMAGE
     Route: 048
     Dates: start: 20040701, end: 20040722
  4. NORVASC [Suspect]
     Indication: HYPERTENSION
     Dosage: 5 MG/DAILY PO
     Route: 048
     Dates: start: 20010314, end: 20040413
  5. CATALIN [Concomitant]

REACTIONS (3)
  - DIABETES MELLITUS [None]
  - GASTRIC CANCER [None]
  - HYPERLIPIDAEMIA [None]
